FAERS Safety Report 21643369 (Version 3)
Quarter: 2022Q4

REPORT INFORMATION
  Report Type: Report from Study
  Country: US (occurrence: US)
  Receive Date: 20221125
  Receipt Date: 20221223
  Transmission Date: 20230113
  Serious: Yes (Other)
  Sender: FDA-Public Use
  Company Number: US-TEVA-2022-US-2829587

PATIENT
  Age: 35 Year
  Sex: Female

DRUGS (2)
  1. CLARAVIS [Suspect]
     Active Substance: ISOTRETINOIN
     Indication: Product used for unknown indication
     Dosage: 80 MILLIGRAM DAILY;
     Route: 065
     Dates: start: 20220630, end: 20221115
  2. CLARAVIS [Suspect]
     Active Substance: ISOTRETINOIN
     Dosage: FORM STRENGTH AND UNIT DOSE: 40 MG
     Route: 065
     Dates: start: 2021, end: 2022

REACTIONS (1)
  - Unintended pregnancy [Unknown]

NARRATIVE: CASE EVENT DATE: 20221015
